FAERS Safety Report 6052223-6 (Version None)
Quarter: 2009Q1

REPORT INFORMATION
  Report Type: 
  Country: None (occurrence: None)
  Receive Date: 20090121
  Receipt Date: 20081219
  Transmission Date: 20090719
  Serious: Yes (Other)
  Sender: FDA-Public Use
  Company Number: CIP08002850

PATIENT
  Age: 6 Year
  Sex: Female

DRUGS (2)
  1. FURADANTIN [Suspect]
     Indication: URINARY TRACT INFECTION
     Dosage: ORAL
     Route: 048
     Dates: start: 20080915, end: 20080924
  2. DITROPAN [Suspect]
     Indication: URINARY TRACT INFECTION
     Dates: start: 20080915

REACTIONS (1)
  - EPISTAXIS [None]
